FAERS Safety Report 6359398-X (Version None)
Quarter: 2009Q3

REPORT INFORMATION
  Report Type: 
  Country: None (occurrence: None)
  Receive Date: 20090917
  Receipt Date: 20090910
  Transmission Date: 20100115
  Serious: Yes (Hospitalization, Other)
  Sender: FDA-Public Use
  Company Number: DE-ABBOTT-09P-062-0597472-00

PATIENT
  Sex: Male

DRUGS (5)
  1. SIBUTRAMINE [Suspect]
     Indication: DRUG USE FOR UNKNOWN INDICATION
  2. CHLORPROTHIXENE [Concomitant]
     Indication: DRUG USE FOR UNKNOWN INDICATION
  3. OLANZAPINE [Concomitant]
     Indication: DRUG USE FOR UNKNOWN INDICATION
  4. CIPRAMIL [Concomitant]
     Indication: DRUG USE FOR UNKNOWN INDICATION
  5. CHINESE SLIMMING CAPSULES [Concomitant]
     Indication: DRUG USE FOR UNKNOWN INDICATION

REACTIONS (2)
  - ACUTE PSYCHOSIS [None]
  - POISONING [None]
